FAERS Safety Report 6001898-6 (Version None)
Quarter: 2008Q4

REPORT INFORMATION
  Report Type: 
  Country: None (occurrence: None)
  Receive Date: 20081212
  Receipt Date: 20081201
  Transmission Date: 20090506
  Serious: Yes (Hospitalization)
  Sender: FDA-Public Use
  Company Number: 2008AL005565

PATIENT
  Age: 67 Year
  Sex: Female
  Weight: 62.5964 kg

DRUGS (12)
  1. DIGOXIN [Suspect]
     Indication: ATRIAL FIBRILLATION
     Dosage: 0.125MG, DAILY, PO
     Route: 048
  2. SYNTHROID [Concomitant]
  3. ATENOLOL [Concomitant]
  4. COUMADIN [Concomitant]
  5. VYTORIN [Concomitant]
  6. CALCIUM [Concomitant]
  7. ASPIRIN [Concomitant]
  8. FOSAMAX [Concomitant]
  9. EZETIMIBE [Concomitant]
  10. LEVOTHYROXINE SODIUM [Concomitant]
  11. PROTONIX [Concomitant]
  12. ZOCOR [Concomitant]

REACTIONS (21)
  - ABDOMINAL PAIN [None]
  - ASTHENIA [None]
  - BRADYARRHYTHMIA [None]
  - CHEST PAIN [None]
  - COLON ADENOMA [None]
  - CORONARY ARTERY DISEASE [None]
  - DIVERTICULUM [None]
  - DIZZINESS [None]
  - FATIGUE [None]
  - FEELING ABNORMAL [None]
  - HEART RATE IRREGULAR [None]
  - HYPOAESTHESIA FACIAL [None]
  - HYPOPERFUSION [None]
  - HYPOTENSION [None]
  - LOWER GASTROINTESTINAL HAEMORRHAGE [None]
  - PALPITATIONS [None]
  - PARAESTHESIA [None]
  - PELVIC PAIN [None]
  - POLYP COLORECTAL [None]
  - SENSATION OF HEAVINESS [None]
  - VISION BLURRED [None]
